FAERS Safety Report 5900745-8 (Version None)
Quarter: 2008Q3

REPORT INFORMATION
  Report Type: 
  Country: None (occurrence: None)
  Receive Date: 20080923
  Receipt Date: 20080909
  Transmission Date: 20090109
  Serious: Yes (Hospitalization)
  Sender: FDA-Public Use
  Company Number: 200410199BBE

PATIENT
  Age: 3 Year
  Sex: Male

DRUGS (3)
  1. IMMUNE GLOBULIN INTRAVENOUS (HUMAN) [Suspect]
     Indication: KAWASAKI'S DISEASE
     Dosage: 2 G/KG;TOTAL;IV
     Route: 042
  2. ASPIRIN [Concomitant]
  3. AMPICILLIN [Concomitant]

REACTIONS (4)
  - BLOOD THROMBIN INCREASED [None]
  - BLOOD VISCOSITY INCREASED [None]
  - CEREBRAL ATROPHY [None]
  - CEREBRAL INFARCTION [None]
